FAERS Safety Report 16985732 (Version 1)
Quarter: 2019Q4

REPORT INFORMATION
  Report Type: Spontaneous
  Country: US (occurrence: US)
  Receive Date: 20191031
  Receipt Date: 20191031
  Transmission Date: 20200122
  Serious: Yes (Hospitalization)
  Sender: FDA-Public Use
  Company Number: None

PATIENT
  Age: 38 Year
  Sex: Female

DRUGS (5)
  1. TRAZODONE [Concomitant]
     Active Substance: TRAZODONE HYDROCHLORIDE
  2. DUPIXENT [Concomitant]
     Active Substance: DUPILUMAB
  3. OCREOTIDE [Suspect]
     Active Substance: OCTREOTIDE
     Indication: CARCINOID SYNDROME
     Route: 058
     Dates: start: 20180112
  4. VIAGRA [Concomitant]
     Active Substance: SILDENAFIL CITRATE
  5. VALIUM [Concomitant]
     Active Substance: DIAZEPAM

REACTIONS (3)
  - Injection site pain [None]
  - Therapy cessation [None]
  - Cardiac flutter [None]

NARRATIVE: CASE EVENT DATE: 20191030
